FAERS Safety Report 8355978-0 (Version None)
Quarter: 2012Q2

REPORT INFORMATION
  Report Type: 
  Country: None (occurrence: None)
  Receive Date: 20120514
  Receipt Date: 20120430
  Transmission Date: 20120825
  Serious: Yes (Hospitalization)
  Sender: FDA-Public Use
  Company Number: CO-JNJFOC-20120501584

PATIENT
  Age: 23 Year
  Sex: Female

DRUGS (3)
  1. INFLIXIMAB, RECOMBINANT [Suspect]
     Route: 042
     Dates: start: 20120308
  2. ACETAMINOPHEN [Concomitant]
     Route: 048
  3. INFLIXIMAB, RECOMBINANT [Suspect]
     Indication: PSORIASIS
     Route: 042
     Dates: start: 20110708

REACTIONS (8)
  - INFUSION RELATED REACTION [None]
  - BALANCE DISORDER [None]
  - FEELING HOT [None]
  - TREMOR [None]
  - VOMITING [None]
  - DIZZINESS [None]
  - HEADACHE [None]
  - HYPERHIDROSIS [None]
